FAERS Safety Report 8964121 (Version 2)
Quarter: 2012Q4

REPORT INFORMATION
  Report Type: 
  Country: JP (occurrence: JP)
  Receive Date: 20121213
  Receipt Date: 20121227
  Transmission Date: 20130627
  Serious: Yes (Hospitalization)
  Sender: FDA-Public Use
  Company Number: JP-GLAXOSMITHKLINE-B0851251A

PATIENT
  Sex: Female

DRUGS (3)
  1. PAXIL [Suspect]
     Indication: OBSESSIVE-COMPULSIVE DISORDER
     Dosage: 37.5MG Per day
     Route: 048
     Dates: start: 20121116, end: 20121128
  2. PAXIL [Suspect]
     Indication: OBSESSIVE-COMPULSIVE DISORDER
     Route: 048
     Dates: start: 2010, end: 20121115
  3. ABILIFY [Concomitant]
     Dosage: 3MG Per day
     Route: 048

REACTIONS (8)
  - Intestinal obstruction [Recovering/Resolving]
  - Ileus [Recovering/Resolving]
  - Underweight [Unknown]
  - Constipation [Unknown]
  - Compulsive handwashing [Unknown]
  - Anxiety [Unknown]
  - Subileus [Unknown]
  - X-ray abnormal [Unknown]
